FAERS Safety Report 4773862-6 (Version None)
Quarter: 2005Q3

REPORT INFORMATION
  Report Type: 
  Country: None (occurrence: None)
  Receive Date: 20050919
  Receipt Date: 20050901
  Transmission Date: 20060218
  Serious: Yes (Other)
  Sender: FDA-Public Use
  Company Number: 12264

PATIENT
  Age: 33 Year
  Sex: Female

DRUGS (2)
  1. METHOTREXATE [Suspect]
     Indication: ECTOPIC PREGNANCY
     Dosage: 50 MG ALT_DAYS IM
     Route: 030
  2. MISOPROSTOL [Suspect]
     Indication: ECTOPIC PREGNANCY
     Dosage: 400 MICROGRAM WEEKLY VG
     Route: 067

REACTIONS (3)
  - DRUG EXPOSURE DURING PREGNANCY [None]
  - RETAINED PRODUCTS OF CONCEPTION [None]
  - VAGINAL HAEMORRHAGE [None]
